FAERS Safety Report 16719138 (Version 1)
Quarter: 2019Q3

REPORT INFORMATION
  Report Type: Spontaneous
  Country: US (occurrence: US)
  Receive Date: 20190702
  Receipt Date: 20190702
  Transmission Date: 20191005
  Serious: Yes (Disabling)
  Sender: FDA-Public Use
  Company Number: None

PATIENT
  Age: 78 Month
  Sex: Female
  Weight: 72.57 kg

DRUGS (9)
  1. VITAMINS D3 + B12 [Concomitant]
  2. NEXIUM [Concomitant]
     Active Substance: ESOMEPRAZOLE MAGNESIUM
  3. CYMBALTA [Concomitant]
     Active Substance: DULOXETINE HYDROCHLORIDE
  4. TRIAMTERENE. [Concomitant]
     Active Substance: TRIAMTERENE
  5. ADVIL [Concomitant]
     Active Substance: IBUPROFEN
  6. LEVOFLOXACIN 500MG TAB [Suspect]
     Active Substance: LEVOFLOXACIN
     Indication: RESPIRATORY TRACT INFECTION
     Dosage: ?          QUANTITY:7 PILLS;?
     Route: 048
     Dates: start: 20190110, end: 20190117
  7. SERAVENT [Concomitant]
  8. METOPROLOL. [Concomitant]
     Active Substance: METOPROLOL
  9. SENNA [Concomitant]
     Active Substance: SENNA LEAF\SENNOSIDES\SENNOSIDES A AND B

REACTIONS (3)
  - Pain in extremity [None]
  - Musculoskeletal pain [None]
  - Arthralgia [None]

NARRATIVE: CASE EVENT DATE: 20190119
